FAERS Safety Report 13149330 (Version 1)
Quarter: 2017Q1

REPORT INFORMATION
  Report Type: Spontaneous
  Country: US (occurrence: US)
  Receive Date: 20170125
  Receipt Date: 20170125
  Transmission Date: 20170428
  Serious: Yes (Other)
  Sender: FDA-Public Use
  Company Number: US-WEST-WARD PHARMACEUTICALS CORP.-US-H14001-17-00144

PATIENT
  Age: 32 Year
  Sex: Male

DRUGS (6)
  1. BUPRENORPHINE AND NALOXONE [Suspect]
     Active Substance: BUPRENORPHINE\NALOXONE
     Route: 060
  2. BUPRENORPHINE AND NALOXONE [Suspect]
     Active Substance: BUPRENORPHINE\NALOXONE
     Indication: DRUG ABUSE
     Dosage: UP TO 3 TABLETS (24 MG) DAILY
     Route: 060
  3. BUPRENORPHINE AND NALOXONE [Suspect]
     Active Substance: BUPRENORPHINE\NALOXONE
     Route: 060
  4. HEROIN [Concomitant]
     Active Substance: DIACETYLMORPHINE
     Indication: DRUG ABUSE
     Route: 065
  5. BUPRENORPHINE AND NALOXONE [Suspect]
     Active Substance: BUPRENORPHINE\NALOXONE
     Route: 060
  6. ALCOHOL. [Concomitant]
     Active Substance: ALCOHOL
     Indication: ALCOHOL USE
     Route: 065

REACTIONS (7)
  - Drug dependence [Recovering/Resolving]
  - Drug abuse [Recovered/Resolved]
  - Insomnia [Recovering/Resolving]
  - Withdrawal syndrome [Recovering/Resolving]
  - Irritability [Recovering/Resolving]
  - Hyperhidrosis [Recovering/Resolving]
  - Yawning [Recovering/Resolving]
